FAERS Safety Report 10241268 (Version 1)
Quarter: 2014Q2

REPORT INFORMATION
  Report Type: Spontaneous
  Country: US (occurrence: US)
  Receive Date: 20140617
  Receipt Date: 20140617
  Transmission Date: 20141212
  Serious: No
  Sender: FDA-Public Use
  Company Number: US-PFIZER INC-2014162020

PATIENT
  Age: 58 Year
  Sex: Female
  Weight: 51.7 kg

DRUGS (12)
  1. DILANTIN [Suspect]
     Dosage: UNK
  2. DILANTIN [Suspect]
  3. DOXYCYCLINE HYCLATE [Suspect]
     Dosage: UNK
  4. ZITHROMAX [Suspect]
     Dosage: UNK
  5. PRAVACHOL [Suspect]
     Dosage: UNK
  6. METHENAMINE [Suspect]
     Dosage: UNK
  7. PHENOBARBITAL [Suspect]
     Dosage: UNK
  8. PLAQUENIL [Suspect]
     Dosage: UNK
  9. PROZAC [Suspect]
     Dosage: UNK
  10. TEGRETOL [Suspect]
     Dosage: UNK
  11. ERYTHROMYCIN [Suspect]
     Dosage: UNK
  12. DEMEROL [Suspect]
     Dosage: UNK

REACTIONS (1)
  - Drug hypersensitivity [Unknown]
